FAERS Safety Report 7907178-3 (Version None)
Quarter: 2011Q4

REPORT INFORMATION
  Report Type: 
  Country: None (occurrence: None)
  Receive Date: 20111110
  Receipt Date: 20111108
  Transmission Date: 20120403
  Serious: Yes (Other)
  Sender: FDA-Public Use
  Company Number: US-TEVA-306435USA

PATIENT
  Sex: Male

DRUGS (1)
  1. CLARAVIS [Suspect]
     Dosage: 40 MILLIGRAM;
     Route: 048
     Dates: start: 20111006, end: 20111001

REACTIONS (1)
  - SUICIDAL IDEATION [None]
